FAERS Safety Report 4825879-0 (Version None)
Quarter: 2005Q4

REPORT INFORMATION
  Report Type: 
  Country: None (occurrence: None)
  Receive Date: 20051111
  Receipt Date: 20051102
  Transmission Date: 20060501
  Serious: Yes (Other)
  Sender: FDA-Public Use
  Company Number: PHEH2005US12144

PATIENT
  Age: 67 Year
  Sex: Female

DRUGS (12)
  1. ZOMETA [Suspect]
     Indication: METASTASES TO BONE
     Dosage: 3.3 MG, Q28 DAYS
     Dates: start: 20020724, end: 20050922
  2. TAMOXIFEN [Concomitant]
     Indication: BREAST CANCER
     Dosage: 20 MG, QD
     Dates: start: 20020723, end: 20030623
  3. FEMARA [Concomitant]
     Dosage: 2.5 MG, QD
     Dates: start: 20030623, end: 20040901
  4. ARIMIDEX [Concomitant]
     Indication: BREAST CANCER
     Dosage: 1 MG, QD
     Dates: start: 20040901, end: 20050101
  5. AROMASIN [Concomitant]
     Indication: BREAST CANCER
     Dosage: 25 MG, QD
     Dates: start: 20050101
  6. RADIATION THERAPY [Concomitant]
     Indication: BREAST CANCER
     Dosage: 3960 CGY (TOTAL)
     Dates: start: 20020715, end: 20020830
  7. GEMZAR [Concomitant]
     Indication: BREAST CANCER
     Dosage: 1000MG/M2 DOSE DOWN 20%
     Dates: start: 20041223, end: 20050620
  8. DOXIL [Concomitant]
     Indication: BREAST CANCER
     Dosage: 25 MG/M2, UNK
     Dates: start: 20050620
  9. ZINECARD [Concomitant]
     Indication: CARDIOVASCULAR DISORDER
     Dosage: 250 MG/M2, UNK
  10. SYNTHROID [Concomitant]
     Indication: HYPOTHYROIDISM
  11. IRON [Concomitant]
     Indication: IRON DEFICIENCY ANAEMIA
  12. ARANESP [Concomitant]
     Indication: ANAEMIA

REACTIONS (3)
  - IMPAIRED HEALING [None]
  - OSTEONECROSIS [None]
  - TOOTH EXTRACTION [None]
